FAERS Safety Report 6652196-9 (Version None)
Quarter: 2010Q1

REPORT INFORMATION
  Report Type: 
  Country: None (occurrence: None)
  Receive Date: 20100325
  Receipt Date: 20100319
  Transmission Date: 20100710
  Serious: Yes (Death)
  Sender: FDA-Public Use
  Company Number: AT-ELI_LILLY_AND_COMPANY-AT201003005696

PATIENT
  Age: 35 Year
  Sex: Female
  Weight: 90 kg

DRUGS (8)
  1. ALIMTA [Suspect]
     Indication: NON-SMALL CELL LUNG CANCER
     Dosage: 500 MG/M2, UNKNOWN
     Route: 042
  2. ALIMTA [Suspect]
     Dosage: UNK, UNKNOWN (80% OF 500MG/M2)
     Route: 042
  3. ALIMTA [Suspect]
     Dosage: UNK, UNKNOWN (50% OF 500MG/M2)
     Route: 042
  4. ALIMTA [Suspect]
     Dosage: UNK, UNKNOWN (50% OF 500MG/M2)
     Route: 042
  5. CISPLATIN [Concomitant]
     Indication: NON-SMALL CELL LUNG CANCER
     Dosage: 75 MG/M2, UNKNOWN
     Route: 042
  6. CISPLATIN [Concomitant]
     Dosage: UNK, UNKNOWN (80 % OF 75MG/M2)
     Route: 042
  7. CISPLATIN [Concomitant]
     Dosage: UNK, UNKNOWN (50 % OF 75MG/M2)
     Route: 042
  8. CISPLATIN [Concomitant]
     Dosage: UNK, UNKNOWN (50 % OF 75MG/M2)
     Route: 042

REACTIONS (1)
  - BONE MARROW FAILURE [None]
